FAERS Safety Report 5465512-0 (Version None)
Quarter: 2007Q3

REPORT INFORMATION
  Report Type: 
  Country: None (occurrence: None)
  Receive Date: 20070924
  Receipt Date: 20040317
  Transmission Date: 20080115
  Serious: Yes (Death, Other)
  Sender: FDA-Public Use
  Company Number: NL-PFIZER INC-2006087259

PATIENT
  Age: 60 Year
  Sex: Female

DRUGS (3)
  1. IRINOTECAN HCL [Suspect]
     Indication: COLON CANCER
     Dosage: DAILY DOSE:350MG
     Route: 042
     Dates: start: 20031202, end: 20031202
  2. CAPECITABINE [Suspect]
     Indication: COLON CANCER
     Dosage: DAILY DOSE:1000MG
     Route: 048
     Dates: start: 20031202, end: 20031216
  3. PRIMPERAN [Concomitant]
     Dosage: DAILY DOSE:60MG-FREQ:EVERY DAY

REACTIONS (10)
  - BLOOD LACTATE DEHYDROGENASE INCREASED [None]
  - DEATH [None]
  - HAEMOLYSIS [None]
  - ILEUS [None]
  - MALIGNANT ASCITES [None]
  - NAUSEA [None]
  - NEUTROPENIC INFECTION [None]
  - RENAL IMPAIRMENT [None]
  - THROMBOCYTOPENIA [None]
  - VOMITING [None]
